FAERS Safety Report 4829910-8 (Version None)
Quarter: 2005Q4

REPORT INFORMATION
  Report Type: 
  Country: None (occurrence: None)
  Receive Date: 20051115
  Receipt Date: 20051103
  Transmission Date: 20060501
  Serious: Yes (Other)
  Sender: FDA-Public Use
  Company Number: 2005140686

PATIENT
  Sex: Male

DRUGS (4)
  1. DILANTIN [Suspect]
     Indication: ILL-DEFINED DISORDER
  2. GABAPENTIN [Concomitant]
  3. LAMICTAL [Concomitant]
  4. ALL OTHER THERAPEUTIC PRODUCTS (ALL OTHER THERAPEUTIC PRODUCTS) [Concomitant]

REACTIONS (1)
  - CONVULSION [None]
